FAERS Safety Report 16775962 (Version 6)
Quarter: 2019Q4

REPORT INFORMATION
  Report Type: Spontaneous
  Country: US (occurrence: US)
  Receive Date: 20190905
  Receipt Date: 20191227
  Transmission Date: 20200122
  Serious: Yes (Other)
  Sender: FDA-Public Use
  Company Number: US-PFIZER INC-2019352360

PATIENT
  Age: 29 Year
  Sex: Female

DRUGS (3)
  1. NORETHISTERONE [Concomitant]
     Active Substance: NORETHINDRONE
     Indication: ADJUVANT THERAPY
     Dosage: 5 MG, DAILY
  2. SYNAREL [Suspect]
     Active Substance: NAFARELIN ACETATE
     Indication: ENDOMETRIOSIS
     Dosage: 0.2 MG, TWO TIMES A DAY (ALTERNATING NOSTRILS WITH MORNING AND EVENING DOSES)
     Route: 055
     Dates: start: 201811
  3. SYNAREL [Suspect]
     Active Substance: NAFARELIN ACETATE
     Indication: PELVIC PAIN
     Dosage: UNK, TAKING MEDICATION DIFFERENTLY
     Route: 055

REACTIONS (5)
  - Condition aggravated [Not Recovered/Not Resolved]
  - Intentional product misuse [Unknown]
  - Vaginal haemorrhage [Not Recovered/Not Resolved]
  - Stress [Unknown]
  - Product dispensing issue [Unknown]

NARRATIVE: CASE EVENT DATE: 201908
